FAERS Safety Report 5140426-4 (Version None)
Quarter: 2006Q4

REPORT INFORMATION
  Report Type: 
  Country: None (occurrence: None)
  Receive Date: 20061026
  Receipt Date: 20061026
  Transmission Date: 20070319
  Serious: Yes (Death)
  Sender: FDA-Public Use
  Company Number: None

PATIENT
  Age: 66 Year
  Sex: Female
  Weight: 63 kg

DRUGS (3)
  1. WARFARIN SODIUM [Suspect]
     Indication: ATRIAL FIBRILLATION
     Dates: start: 20041001, end: 20051031
  2. ALEVE [Suspect]
     Indication: ARTHRALGIA
     Dates: start: 20051024, end: 20051031
  3. ALEVE [Suspect]
     Indication: MYALGIA
     Dates: start: 20051024, end: 20051031

REACTIONS (6)
  - CONTUSION [None]
  - DYSPNOEA [None]
  - HAEMATOCHEZIA [None]
  - INTERNATIONAL NORMALISED RATIO INCREASED [None]
  - MYALGIA [None]
  - RETROPERITONEAL HAEMORRHAGE [None]
